FAERS Safety Report 22142996 (Version 1)
Quarter: 2023Q1

REPORT INFORMATION
  Report Type: Report from Study
  Country: DE (occurrence: DE)
  Receive Date: 20230327
  Receipt Date: 20230327
  Transmission Date: 20230418
  Serious: Yes (Other)
  Sender: FDA-Public Use
  Company Number: DE-002147023-NVSC2020DE342756

PATIENT
  Sex: Female
  Weight: 67.6 kg

DRUGS (6)
  1. LETROZOLE [Suspect]
     Active Substance: LETROZOLE
     Indication: Breast cancer metastatic
     Dosage: 2.5 MG, QD
     Route: 048
     Dates: start: 20201009
  2. KISQALI [Suspect]
     Active Substance: RIBOCICLIB
     Indication: Breast cancer metastatic
     Dosage: 600MG,QD,SCHEME21 DAYS INTAKE, THAN 7 DAY PAUSE
     Route: 048
     Dates: start: 20201009, end: 20201105
  3. KISQALI [Suspect]
     Active Substance: RIBOCICLIB
     Dosage: 400 MG,QD,SCHEME21 DAYS INTAKE, THAN 7 DAY PAUSE
     Route: 048
     Dates: start: 20201112, end: 20201209
  4. KISQALI [Suspect]
     Active Substance: RIBOCICLIB
     Dosage: 400 MG,QD,SCHEME21 DAYS INTAKE, THAN 7 DAY PAUSE
     Route: 048
     Dates: start: 20201219, end: 20220114
  5. KISQALI [Suspect]
     Active Substance: RIBOCICLIB
     Dosage: 200 MG,QD,SCHEME21 DAYS INTAKE, THAN 7 DAY PAUSE
     Route: 048
     Dates: start: 20220115, end: 20221111
  6. KISQALI [Suspect]
     Active Substance: RIBOCICLIB
     Dosage: 200MG, QD,SCHEME21 DAYS INTAKE, THAN 7 DAY PAUSE
     Route: 048
     Dates: start: 20230106

REACTIONS (5)
  - Neutropenia [Recovered/Resolved]
  - Leukopenia [Recovered/Resolved]
  - Urinary tract infection [Not Recovered/Not Resolved]
  - COVID-19 [Recovered/Resolved]
  - Nausea [Recovered/Resolved]

NARRATIVE: CASE EVENT DATE: 20201014
